FAERS Safety Report 5011963-8 (Version None)
Quarter: 2006Q2

REPORT INFORMATION
  Report Type: 
  Country: None (occurrence: None)
  Receive Date: 20060524
  Receipt Date: 20060512
  Transmission Date: 20061013
  Serious: Yes (Hospitalization)
  Sender: FDA-Public Use
  Company Number: MEDI-0003269

PATIENT
  Sex: Male

DRUGS (7)
  1. SYNAGIS [Suspect]
     Indication: ANTIVIRAL PROPHYLAXIS
     Dosage: 64 MG, 1 IN 30 D, INTRAMUSCULAR
     Route: 030
     Dates: start: 20031218, end: 20040302
  2. ALFACALCIDOL (ALFACALCIDOL) [Concomitant]
  3. EPOETIN ALFA (EPOETIN ALFA) [Concomitant]
  4. FERRIC PYROPHOSPHATE (FERRIC PYROPHOSPHATE) [Concomitant]
  5. TOCOPHEROL NICOTINATE (TOCOPHERYL NICOTINATE) [Concomitant]
  6. ALPROSTADIL ALFADEX (ALPROSTADIL ALFADEX) [Concomitant]
  7. AZULENE (AZULENE) [Concomitant]

REACTIONS (1)
  - INFANTILE ASTHMA [None]
